FAERS Safety Report 9168567 (Version 1)
Quarter: 2013Q1

REPORT INFORMATION
  Report Type: Spontaneous
  Country: US (occurrence: None)
  Receive Date: 20130314
  Receipt Date: 20130314
  Transmission Date: 20140127
  Serious: Yes (Other)
  Sender: FDA-Public Use
  Company Number: None

PATIENT
  Age: 56 Year
  Sex: Female
  Weight: 67.13 kg

DRUGS (2)
  1. BYSTOLIC 5MG [Suspect]
     Indication: HYPERTENSION
     Route: 048
     Dates: start: 20130221, end: 20130221
  2. BENAZEPRIL [Concomitant]

REACTIONS (4)
  - Tooth disorder [None]
  - Feeling cold [None]
  - Arthropathy [None]
  - Sensory loss [None]
